FAERS Safety Report 6389886-1 (Version None)
Quarter: 2009Q4

REPORT INFORMATION
  Report Type: 
  Country: None (occurrence: None)
  Receive Date: 20091006
  Receipt Date: 20090209
  Transmission Date: 20100525
  Serious: No
  Sender: FDA-Public Use
  Company Number: US-BRISTOL-MYERS SQUIBB COMPANY-14498406

PATIENT
  Age: 57 Year
  Sex: Female
  Weight: 129 kg

DRUGS (8)
  1. AVAPRO [Suspect]
     Indication: BLOOD PRESSURE FLUCTUATION
     Dates: start: 20081001
  2. ATENOLOL [Concomitant]
  3. VERAPAMIL [Concomitant]
  4. DETROL LA [Concomitant]
  5. ESTRADIOL [Concomitant]
  6. LEVOTHYROXINE SODIUM [Concomitant]
  7. MAGNESIUM [Concomitant]
  8. POTASSIUM CHLORIDE [Concomitant]

REACTIONS (1)
  - URINARY TRACT INFECTION [None]
